FAERS Safety Report 19009110 (Version 3)
Quarter: 2021Q2

REPORT INFORMATION
  Report Type: Report from Study
  Country: CO (occurrence: CO)
  Receive Date: 20210316
  Receipt Date: 20210419
  Transmission Date: 20210717
  Serious: Yes (Hospitalization, Other)
  Sender: FDA-Public Use
  Company Number: CO-AMGEN-COLSL2021002832

PATIENT
  Age: 81 Year
  Sex: Female

DRUGS (2)
  1. NATURAL TEARS [Concomitant]
     Active Substance: POLYVINYL ALCOHOL\POVIDONE
     Dosage: 1 DROP, BID (1 DROP IN EACH EYE)
  2. VECTIBIX [Suspect]
     Active Substance: PANITUMUMAB
     Indication: COLORECTAL CANCER METASTATIC
     Dosage: 624 MILLIGRAM, Q3WK
     Route: 042
     Dates: start: 20200604, end: 20210227

REACTIONS (9)
  - Blister [Not Recovered/Not Resolved]
  - Off label use [Unknown]
  - Hysterectomy [Unknown]
  - Inflammation [Not Recovered/Not Resolved]
  - Nail disorder [Unknown]
  - Skin reaction [Unknown]
  - Kidney infection [Not Recovered/Not Resolved]
  - Loss of personal independence in daily activities [Not Recovered/Not Resolved]
  - Pruritus [Unknown]

NARRATIVE: CASE EVENT DATE: 20200604
